FAERS Safety Report 8779500 (Version 1)
Quarter: 2012Q4

REPORT INFORMATION
  Report Type: 
  Country: DE (occurrence: DE)
  Receive Date: 20120912
  Receipt Date: 20120912
  Transmission Date: 20130627
  Serious: Yes (Other)
  Sender: FDA-Public Use
  Company Number: DE-ROCHE-1114872

PATIENT
  Age: 64 Year
  Sex: Male

DRUGS (4)
  1. ROFERON-A [Suspect]
     Indication: PRODUCT USED FOR UNKNOWN INDICATION
     Route: 065
     Dates: start: 1997
  2. COPEGUS [Suspect]
     Indication: PRODUCT USED FOR UNKNOWN INDICATION
     Route: 065
     Dates: start: 1997
  3. PEG-INTERFERON ALFA 2A [Suspect]
     Indication: PRODUCT USED FOR UNKNOWN INDICATION
     Route: 065
  4. TELAPREVIR [Suspect]
     Indication: PRODUCT USED FOR UNKNOWN INDICATION

REACTIONS (17)
  - Drug ineffective [Unknown]
  - Anaemia [Unknown]
  - Thrombocytopenia [Unknown]
  - Leukopenia [Unknown]
  - Hyperbilirubinaemia [Unknown]
  - Gamma-glutamyltransferase increased [Unknown]
  - Asthenia [Unknown]
  - Anal pruritus [Unknown]
  - Diarrhoea [Unknown]
  - Weight decreased [Unknown]
  - Cough [Unknown]
  - Rash [Unknown]
  - Pyrexia [Unknown]
  - Mental disorder [Unknown]
  - Sleep disorder [Unknown]
  - Aggression [Unknown]
  - Decreased appetite [Unknown]
